FAERS Safety Report 7202566-5 (Version None)
Quarter: 2010Q4

REPORT INFORMATION
  Report Type: 
  Country: None (occurrence: None)
  Receive Date: 20101229
  Receipt Date: 20101221
  Transmission Date: 20110411
  Serious: Yes (Hospitalization)
  Sender: FDA-Public Use
  Company Number: CA-MERCK-1012USA03432

PATIENT
  Age: 47 Year
  Sex: Male
  Weight: 136 kg

DRUGS (36)
  1. JANUMET [Suspect]
     Route: 048
  2. APO-METRONIDAZOLE [Concomitant]
     Route: 065
  3. APO-PREDNISONA [Concomitant]
     Route: 065
  4. APO-ATENOL [Concomitant]
     Route: 065
  5. APO-CEPHALEX [Concomitant]
     Route: 065
  6. FENOFIBRATE [Concomitant]
     Route: 065
  7. HYDROCHLOROTHIAZIDE [Concomitant]
     Route: 065
  8. APO-RAMIPRIL [Concomitant]
     Route: 065
  9. TERBINAFINE HYDROCHLORIDE [Concomitant]
     Route: 065
  10. WARFARIN [Concomitant]
     Route: 065
  11. ASPIRIN [Concomitant]
     Route: 065
  12. ATROVENT HFA [Concomitant]
     Route: 055
  13. AVELOX [Concomitant]
     Route: 065
  14. AZITHROMYCIN [Concomitant]
     Route: 065
  15. LIPITOR [Concomitant]
     Route: 065
  16. CLINDAMYCIN [Concomitant]
     Route: 065
  17. METFORMIN [Concomitant]
     Route: 065
  18. NIACIN [Concomitant]
     Route: 065
  19. GUAIFENESIN AND HYDROCODONE BITARTRATE AND PHENYLEPHRINE HYDROCHLORIDE [Concomitant]
     Route: 065
  20. NOVAMOXIN [Concomitant]
     Route: 065
  21. GLICLAZIDE [Concomitant]
     Route: 065
  22. NOVO-GLYBURIDE [Concomitant]
     Route: 065
  23. NOVO-METFORMIN [Concomitant]
     Route: 065
  24. NOVO METHACIN [Concomitant]
     Route: 065
  25. NOVO-QUININE [Concomitant]
     Route: 065
  26. PMS HYDROCHLOROTHIAZIDE [Concomitant]
     Route: 065
  27. METFORMIN [Concomitant]
     Route: 065
  28. ZOPICLONE [Concomitant]
     Route: 065
  29. OXYCET [Concomitant]
     Route: 065
  30. RATIO RAMIPRIL [Concomitant]
     Route: 065
  31. RATIO-SALBUTAMOL [Concomitant]
     Route: 055
  32. TYLENOL W/ CODEINE NO. 4 [Concomitant]
     Route: 065
  33. FLOVENT HFA [Concomitant]
     Route: 065
  34. OXYCODONE HCL AND ACETAMINOPHEN [Concomitant]
     Route: 065
  35. AZITHROMYCIN [Concomitant]
     Route: 065
  36. TERBINAFINE [Concomitant]
     Route: 065

REACTIONS (3)
  - MUSCULOSKELETAL CHEST PAIN [None]
  - PAIN [None]
  - PANCREATITIS [None]
